FAERS Safety Report 12461027 (Version 3)
Quarter: 2016Q3

REPORT INFORMATION
  Report Type: Report from Study
  Country: US (occurrence: US)
  Receive Date: 20160613
  Receipt Date: 20160810
  Transmission Date: 20161109
  Serious: Yes (Other)
  Sender: FDA-Public Use
  Company Number: US-009507513-1606USA000884

PATIENT
  Age: 61 Year
  Sex: Male
  Weight: 76.06 kg

DRUGS (8)
  1. KEYTRUDA [Suspect]
     Active Substance: PEMBROLIZUMAB
     Indication: HEAD AND NECK CANCER
     Dosage: 100 MG, UNK
     Route: 042
     Dates: start: 20151231, end: 20160506
  2. TYLENOL [Concomitant]
     Active Substance: ACETAMINOPHEN
     Dosage: 650 MG, Q6H
     Route: 048
  3. SYNTHROID [Concomitant]
     Active Substance: LEVOTHYROXINE SODIUM
     Dosage: 1 DF, QD
     Route: 048
  4. DEMADEX [Concomitant]
     Active Substance: TORSEMIDE
     Dosage: 1 DF, QD
     Route: 048
  5. ARISTOCORT (TRIAMCINOLONE ACETONIDE) [Concomitant]
     Dosage: 1 DF, QD
     Route: 048
  6. COREG [Concomitant]
     Active Substance: CARVEDILOL
     Dosage: 1 DF, BID
     Route: 048
  7. NORCO [Concomitant]
     Active Substance: ACETAMINOPHEN\HYDROCODONE BITARTRATE
     Indication: NEUROPATHY PERIPHERAL
     Dosage: 325 MG, UNK
     Dates: start: 20130807
  8. LIORESAL [Concomitant]
     Active Substance: BACLOFEN
     Dosage: 1 DF, BID
     Route: 048

REACTIONS (3)
  - Malignant neoplasm progression [Unknown]
  - Weight decreased [Unknown]
  - Off label use [Unknown]

NARRATIVE: CASE EVENT DATE: 201512
